FAERS Safety Report 9348576 (Version 1)
Quarter: 2013Q2

REPORT INFORMATION
  Report Type: Spontaneous
  Country: US (occurrence: None)
  Receive Date: 20130613
  Receipt Date: 20130613
  Transmission Date: 20140414
  Serious: Yes (Other)
  Sender: FDA-Public Use
  Company Number: None

PATIENT
  Age: 80 Year
  Sex: Female
  Weight: 65.77 kg

DRUGS (9)
  1. LYRICA [Suspect]
     Indication: NECK PAIN
     Dosage: STARTED 1 FOR 3 DAY  2 THEN 3/DAY-THEN DECREASED ?EVENING BEDTIME?BY MOUTH-1 TIME DAY (EVENING)
     Route: 048
     Dates: start: 20120319, end: 20120406
  2. LOSARTAN [Concomitant]
  3. VERAPIMIL SR [Concomitant]
  4. RED YEAST RICE [Concomitant]
  5. FOLIC ACID [Concomitant]
  6. VAGIFEM [Concomitant]
  7. MULTI VIT [Concomitant]
  8. NAPROXIN [Concomitant]
  9. IPRUPROFEN [Concomitant]

REACTIONS (3)
  - Fatigue [None]
  - Vision blurred [None]
  - Gait disturbance [None]
